FAERS Safety Report 5170257-0 (Version None)
Quarter: 2006Q4

REPORT INFORMATION
  Report Type: 
  Country: None (occurrence: None)
  Receive Date: 20061212
  Receipt Date: 20061206
  Transmission Date: 20070319
  Serious: Yes (Other)
  Sender: FDA-Public Use
  Company Number: US-JNJFOC-20061201917

PATIENT
  Age: 24 Year
  Sex: Female
  Weight: 77.11 kg

DRUGS (5)
  1. MONISTAT 1 COMBINATION PACK [Suspect]
     Route: 067
  2. MONISTAT 1 COMBINATION PACK [Suspect]
     Indication: VULVOVAGINAL MYCOTIC INFECTION
     Route: 067
  3. MONISTAT 1 COMBINATION PACK [Suspect]
     Route: 061
  4. MONISTAT 1 COMBINATION PACK [Suspect]
     Route: 061
  5. ALBUTEROL [Concomitant]

REACTIONS (4)
  - DRUG EXPOSURE DURING PREGNANCY [None]
  - EXPIRED DRUG ADMINISTERED [None]
  - PREMATURE LABOUR [None]
  - WRONG DRUG ADMINISTERED [None]
